FAERS Safety Report 8860946 (Version 1)
Quarter: 2012Q4

REPORT INFORMATION
  Report Type: 
  Country: US (occurrence: US)
  Receive Date: 20121025
  Receipt Date: 20121025
  Transmission Date: 20130627
  Serious: No
  Sender: FDA-Public Use
  Company Number: US-B.I. PHARMACEUTICALS,INC./RIDGEFIELD-2012-BP-25912BP

PATIENT
  Sex: Female

DRUGS (1)
  1. ZANTAC 150 (RANITIDINE HYDROCHLORIDE) [Suspect]
     Indication: DYSPEPSIA
     Route: 048

REACTIONS (3)
  - Amphetamines positive [Not Recovered/Not Resolved]
  - Urine amphetamine positive [Not Recovered/Not Resolved]
  - Urine amphetamine positive [Not Recovered/Not Resolved]
